FAERS Safety Report 8295789-8 (Version None)
Quarter: 2012Q2

REPORT INFORMATION
  Report Type: 
  Country: None (occurrence: None)
  Receive Date: 20120418
  Receipt Date: 20120412
  Transmission Date: 20120825
  Serious: Yes (Hospitalization)
  Sender: FDA-Public Use
  Company Number: US-BAYER-2012-009275

PATIENT
  Age: 27 Year
  Sex: Female
  Weight: 58.957 kg

DRUGS (3)
  1. VICODIN [Concomitant]
  2. YASMIN [Suspect]
     Indication: MENORRHAGIA
     Dosage: UNK
     Dates: start: 20020301, end: 20020913
  3. WOMENS ONE A DAY [Concomitant]
     Indication: SUPPLEMENTATION THERAPY
     Dosage: UNK UNK, QD

REACTIONS (2)
  - PULMONARY EMBOLISM [None]
  - PAIN [None]
